FAERS Safety Report 6797398-6 (Version None)
Quarter: 2010Q2

REPORT INFORMATION
  Report Type: 
  Country: None (occurrence: None)
  Receive Date: 20100623
  Receipt Date: 20100617
  Transmission Date: 20101027
  Serious: Yes (Other)
  Sender: FDA-Public Use
  Company Number: CO-1182128

PATIENT

DRUGS (2)
  1. NEVANAC [Suspect]
     Dosage: OPHTHALMIC
     Route: 047
  2. VIGADEXA (VIGADEXA) OPHTHALMIC SOLUTION EYE DROPS, SOLUTION [Suspect]
     Dosage: OPHTHALMIC
     Route: 047

REACTIONS (1)
  - CORNEAL EPITHELIUM DEFECT [None]
